FAERS Safety Report 10929828 (Version 1)
Quarter: 2015Q1

REPORT INFORMATION
  Report Type: Spontaneous
  Country: FI (occurrence: FI)
  Receive Date: 20150319
  Receipt Date: 20150319
  Transmission Date: 20150721
  Serious: Yes (Other)
  Sender: FDA-Public Use
  Company Number: FI-BAYER-2015-033712

PATIENT
  Sex: Female

DRUGS (1)
  1. JAYDESS [Suspect]
     Active Substance: LEVONORGESTREL
     Dosage: 14 MCG/24HR, CONT
     Route: 015
     Dates: start: 20141120, end: 20150306

REACTIONS (6)
  - Haemorrhagic ovarian cyst [None]
  - Abdominal pain lower [None]
  - Drug ineffective [None]
  - Pregnancy [Recovered/Resolved]
  - Menorrhagia [None]
  - Abortion spontaneous incomplete [None]
